FAERS Safety Report 9271909 (Version 1)
Quarter: 2013Q2

REPORT INFORMATION
  Report Type: Spontaneous
  Country: US (occurrence: US)
  Receive Date: 20130506
  Receipt Date: 20130506
  Transmission Date: 20140414
  Serious: Yes (Other)
  Sender: FDA-Public Use
  Company Number: US-PFIZER INC-2013138027

PATIENT
  Age: 40 Year
  Sex: Male
  Weight: 78.91 kg

DRUGS (4)
  1. EPLERENONE [Suspect]
     Indication: HYPERTENSION
     Dosage: 25 MG, 1X/DAY
     Route: 048
     Dates: start: 2009
  2. POTASSIUM [Suspect]
     Indication: HYPERTENSION
     Dosage: 20 MEQ, 2X/DAY
     Route: 048
  3. FUROSEMIDE [Suspect]
     Indication: HYPERTENSION
     Dosage: 40 MG, 1X/DAY
     Route: 048
  4. METOPROLOL [Concomitant]
     Dosage: UNK

REACTIONS (8)
  - Cardiac failure congestive [Recovering/Resolving]
  - Dry skin [Recovering/Resolving]
  - Skin disorder [Recovering/Resolving]
  - Urticaria [Recovering/Resolving]
  - Skin lesion [Recovering/Resolving]
  - Joint swelling [Recovering/Resolving]
  - Pruritus generalised [Recovering/Resolving]
  - Pain [Recovering/Resolving]
